FAERS Safety Report 4719512-6 (Version None)
Quarter: 2005Q3

REPORT INFORMATION
  Report Type: 
  Country: None (occurrence: None)
  Receive Date: 20050719
  Receipt Date: 20050706
  Transmission Date: 20060218
  Serious: Yes (Death)
  Sender: FDA-Public Use
  Company Number: 05-030A

PATIENT
  Sex: Female

DRUGS (1)
  1. LORCET PLUS TABLETS 7.5/650 (HYDROCODONE BITARTRATE AND ACETAMINOPHEN) [Suspect]
     Dates: end: 20031009

REACTIONS (1)
  - DRUG TOXICITY [None]
